FAERS Safety Report 15310817 (Version 1)
Quarter: 2018Q3

REPORT INFORMATION
  Report Type: Spontaneous
  Country: US (occurrence: US)
  Receive Date: 20180813
  Receipt Date: 20180813
  Transmission Date: 20181010
  Serious: No
  Sender: FDA-Public Use
  Company Number: None

PATIENT
  Age: 62 Year
  Sex: Male

DRUGS (2)
  1. MYFORTIC [Concomitant]
     Active Substance: MYCOPHENOLATE SODIUM
  2. TACROLIMUS CAP 0.5MG [Suspect]
     Active Substance: TACROLIMUS

REACTIONS (3)
  - Nausea [None]
  - Drug dose omission [None]
  - Dizziness [None]

NARRATIVE: CASE EVENT DATE: 20180813
